FAERS Safety Report 7268673-6 (Version None)
Quarter: 2011Q1

REPORT INFORMATION
  Report Type: 
  Country: None (occurrence: None)
  Receive Date: 20110121
  Receipt Date: 20110111
  Transmission Date: 20110831
  Serious: Yes (Hospitalization)
  Sender: FDA-Public Use
  Company Number: DSJ-2010-22184

PATIENT
  Age: 64 Year
  Sex: Male
  Weight: 65 kg

DRUGS (3)
  1. CARDENALIN (DOXAZOSIN MESILATE) (DOXAZOSIN MESILATE) [Concomitant]
  2. NORVASC [Suspect]
     Dosage: 5 MG,
     Dates: start: 20100619, end: 20100907
  3. OLMETEC (OLMESARTAN MEDOXOMIL) (TABLET) (OLMESARTAN MEDOXOMIL) [Suspect]
     Indication: ESSENTIAL HYPERTENSION
     Dosage: 10 MG,PER ORAL
     Route: 048
     Dates: start: 20100619, end: 20100831

REACTIONS (4)
  - CEREBRAL INFARCTION [None]
  - MALAISE [None]
  - ORTHOSTATIC HYPOTENSION [None]
  - DIPLOPIA [None]
